FAERS Safety Report 7751277-6 (Version None)
Quarter: 2011Q3

REPORT INFORMATION
  Report Type: 
  Country: None (occurrence: None)
  Receive Date: 20110912
  Receipt Date: 20110829
  Transmission Date: 20111222
  Serious: Yes (Hospitalization)
  Sender: FDA-Public Use
  Company Number: AUR-APL-2011-04892

PATIENT
  Age: 66 Year
  Sex: Male

DRUGS (7)
  1. NAPROXEN [Suspect]
     Indication: ARTHRALGIA
  2. ROSIGLITIZONE [Concomitant]
  3. SITAGLIPTIN [Concomitant]
  4. GLYBURIDE [Concomitant]
  5. TRIMETHOPRIM + SULFAMETHOXAZOLE [Suspect]
     Indication: URINARY TRACT INFECTION
  6. SIMVASTATIN [Concomitant]
  7. LISINOPRIL [Suspect]
     Indication: PRODUCT USED FOR UNKNOWN INDICATION

REACTIONS (11)
  - MUSCLE SPASMS [None]
  - ACUTE MYOCARDIAL INFARCTION [None]
  - BLOOD CREATININE INCREASED [None]
  - NAUSEA [None]
  - URINARY TRACT INFECTION [None]
  - BLOOD UREA INCREASED [None]
  - ARTHRALGIA [None]
  - BLOOD SODIUM DECREASED [None]
  - DEHYDRATION [None]
  - ASTHENIA [None]
  - HYPERKALAEMIA [None]
